FAERS Safety Report 5922387-0 (Version None)
Quarter: 2008Q4

REPORT INFORMATION
  Report Type: 
  Country: None (occurrence: None)
  Receive Date: 20081017
  Receipt Date: 20081009
  Transmission Date: 20090506
  Serious: Yes (Death, Hospitalization)
  Sender: FDA-Public Use
  Company Number: GB-MERCK-0804GBR00142

PATIENT
  Age: 71 Year
  Sex: Female

DRUGS (5)
  1. FOSAMAX [Suspect]
     Indication: SPINAL COMPRESSION FRACTURE
     Route: 048
     Dates: start: 20080219, end: 20080316
  2. HYDRALAZINE [Concomitant]
     Indication: HYPERTENSION
     Route: 048
     Dates: start: 20050920, end: 20080317
  3. LANSOPRAZOLE [Concomitant]
     Indication: DYSPEPSIA
     Route: 048
     Dates: start: 20070524, end: 20080317
  4. LISINOPRIL [Concomitant]
     Indication: HYPERTENSION
     Route: 048
     Dates: start: 20050203, end: 20080317
  5. SIMVASTATIN [Concomitant]
     Route: 048
     Dates: start: 20061019, end: 20080317

REACTIONS (4)
  - ABDOMINAL PAIN [None]
  - DUODENAL ULCER PERFORATION [None]
  - MULTI-ORGAN FAILURE [None]
  - PERITONITIS [None]
